FAERS Safety Report 8708843 (Version 4)
Quarter: 2014Q4

REPORT INFORMATION
  Report Type: Spontaneous
  Country: US (occurrence: US)
  Receive Date: 20120806
  Receipt Date: 20141125
  Transmission Date: 20150529
  Serious: Yes (Hospitalization, Disabling)
  Sender: FDA-Public Use
  Company Number: US-BAYER-2012-076250

PATIENT
  Age: 37 Year
  Sex: Female
  Weight: 118.82 kg

DRUGS (21)
  1. YAZ [Suspect]
     Active Substance: DROSPIRENONE\ETHINYL ESTRADIOL
     Indication: CONTRACEPTION
     Dosage: UNK
     Dates: start: 2008, end: 2012
  2. YASMIN [Suspect]
     Active Substance: DROSPIRENONE\ETHINYL ESTRADIOL
     Indication: CONTRACEPTION
     Dosage: UNK
     Dates: start: 2008, end: 2012
  3. LISINOPRILHYDROCHLOROTHIAZIDE RATIOPHARM [Concomitant]
  4. HIBICLENS [Concomitant]
     Active Substance: CHLORHEXIDINE GLUCONATE
  5. LIDOCAINE. [Concomitant]
     Active Substance: LIDOCAINE
     Dosage: 2 %, UNK
     Dates: start: 20110823
  6. SILDENAFIL. [Concomitant]
     Active Substance: SILDENAFIL
  7. OCELLA [Suspect]
     Active Substance: DROSPIRENONE\ETHINYL ESTRADIOL
     Indication: CONTRACEPTION
     Dosage: UNK
     Dates: start: 2008, end: 2012
  8. CIPROFLOXACIN. [Concomitant]
     Active Substance: CIPROFLOXACIN
  9. REMODULIN [Concomitant]
     Active Substance: TREPROSTINIL
  10. HYDROCODONE/ACETAMINOPHEN [Concomitant]
     Active Substance: ACETAMINOPHEN\HYDROCODONE
     Dosage: 5-500 MG
     Route: 048
     Dates: start: 20110803
  11. PREDNISONE. [Concomitant]
     Active Substance: PREDNISONE
  12. NAPROXEN. [Concomitant]
     Active Substance: NAPROXEN
  13. GABAPENTIN. [Concomitant]
     Active Substance: GABAPENTIN
  14. NORCO [Concomitant]
     Active Substance: ACETAMINOPHEN\HYDROCODONE BITARTRATE
  15. PROVENTIL [Concomitant]
     Active Substance: ALBUTEROL
  16. HYDROCODONE/ACETAMINOPHEN [Concomitant]
     Active Substance: ACETAMINOPHEN\HYDROCODONE
     Dosage: 10-325 MG
     Route: 048
     Dates: start: 20110823, end: 20111024
  17. OMEPRAZOLE. [Concomitant]
     Active Substance: OMEPRAZOLE
  18. MORPHINE SULFATE. [Concomitant]
     Active Substance: MORPHINE SULFATE
     Indication: PAIN
     Dosage: 15 MG ER, ONCE TWICE A DAY
     Route: 048
     Dates: start: 20110823
  19. EPIPEN [Concomitant]
     Active Substance: EPINEPHRINE
  20. QVAR [Concomitant]
     Active Substance: BECLOMETHASONE DIPROPIONATE
  21. ONDANSETRON [Concomitant]
     Active Substance: ONDANSETRON

REACTIONS (10)
  - Atelectasis [None]
  - Deep vein thrombosis [None]
  - Thrombophlebitis superficial [None]
  - Dyspnoea [None]
  - Injury [None]
  - Pulmonary embolism [None]
  - Cardiac failure [None]
  - Pulmonary arterial hypertension [None]
  - Pain in extremity [None]
  - Pain [None]

NARRATIVE: CASE EVENT DATE: 201111
